FAERS Safety Report 8763680 (Version 2)
Quarter: 2012Q4

REPORT INFORMATION
  Report Type: 
  Country: CA (occurrence: CA)
  Receive Date: 20120828
  Receipt Date: 20120919
  Transmission Date: 20130627
  Serious: Yes (Hospitalization)
  Sender: FDA-Public Use
  Company Number: CA-B.I. PHARMACEUTICALS,INC./RIDGEFIELD-2012-CN-01762CN

PATIENT
  Age: 64 Year
  Sex: Male

DRUGS (3)
  1. PRADAX [Suspect]
     Indication: ATRIAL FIBRILLATION
     Dosage: 300 mg
     Dates: start: 201110, end: 201112
  2. BETA BLOCKER [Concomitant]
  3. LIPID LOWERING AGENT [Concomitant]
     Indication: HYPERLIPIDAEMIA

REACTIONS (1)
  - Deep vein thrombosis [Recovered/Resolved]
